FAERS Safety Report 14412684 (Version 17)
Quarter: 2019Q1

REPORT INFORMATION
  Report Type: Spontaneous
  Country: CA (occurrence: CA)
  Receive Date: 20180119
  Receipt Date: 20190121
  Transmission Date: 20190417
  Serious: Yes (Other)
  Sender: FDA-Public Use
  Company Number: CA-CELLTRION INC.-2018CA017333

PATIENT

DRUGS (13)
  1. INFLECTRA [Suspect]
     Active Substance: INFLIXIMAB-DYYB
     Dosage: 900 MG, 2, 6 WEEKS, THEN EVERY 8 WEEKS
     Route: 042
     Dates: start: 20180530
  2. INFLECTRA [Suspect]
     Active Substance: INFLIXIMAB-DYYB
     Dosage: 10 MG/KG, UNK
     Route: 042
     Dates: start: 20180404
  3. MAGNESIUM [Concomitant]
     Active Substance: MAGNESIUM
     Dosage: UNK
  4. INFLECTRA [Suspect]
     Active Substance: INFLIXIMAB-DYYB
     Indication: CROHN^S DISEASE
     Dosage: 500 MG, 0, 2, 6 WEEKS, THEN EVERY 8  WEEKS
     Route: 042
     Dates: start: 20171214
  5. INFLECTRA [Suspect]
     Active Substance: INFLIXIMAB-DYYB
     Dosage: 900 MG, 2, 6 WEEKS, THEN EVERY 8 WEEKS
     Route: 042
     Dates: start: 20180725
  6. IMURAN [Concomitant]
     Active Substance: AZATHIOPRINE
     Dosage: UNK
  7. INFLECTRA [Suspect]
     Active Substance: INFLIXIMAB-DYYB
     Dosage: 500 MG, 0, 2, 6 WEEKS, THEN EVERY 8  WEEKS
     Route: 042
     Dates: start: 20171228
  8. INFLECTRA [Suspect]
     Active Substance: INFLIXIMAB-DYYB
     Dosage: 900 MG, EVERY  6 WEEKS, THE EVERY 8  WEEKS
     Route: 042
     Dates: start: 20180125
  9. INFLECTRA [Suspect]
     Active Substance: INFLIXIMAB-DYYB
     Dosage: 900 MG, 2, 6 WEEKS, THEN EVERY 8 WEEKS
     Route: 042
     Dates: start: 20180919
  10. INFLECTRA [Suspect]
     Active Substance: INFLIXIMAB-DYYB
     Dosage: 900 MG, (2, 6 WEEKS, THEN EVERY 8 WEEKS)
     Route: 042
     Dates: start: 20181116
  11. INFLECTRA [Suspect]
     Active Substance: INFLIXIMAB-DYYB
     Dosage: 900 MG 2, 6 WEEKS, THEN EVERY 8 WEEKS
     Route: 042
     Dates: start: 20180307
  12. INFLECTRA [Suspect]
     Active Substance: INFLIXIMAB-DYYB
     Dosage: 900 MG, (2, 6 WEEKS, THEN EVERY 8 WEEKS)
     Route: 042
     Dates: start: 20190110
  13. MEZAVANT [Concomitant]
     Active Substance: MESALAMINE
     Dosage: UNK

REACTIONS (13)
  - Haematochezia [Recovered/Resolved]
  - Product use issue [Unknown]
  - Muscle spasms [Unknown]
  - Abdominal distension [Not Recovered/Not Resolved]
  - Drug level above therapeutic [Unknown]
  - Drug effect incomplete [Recovering/Resolving]
  - Condition aggravated [Recovering/Resolving]
  - Fatigue [Recovering/Resolving]
  - Flatulence [Not Recovered/Not Resolved]
  - Gastrointestinal inflammation [Unknown]
  - Malaise [Not Recovered/Not Resolved]
  - Abscess [Not Recovered/Not Resolved]
  - Mucous stools [Not Recovered/Not Resolved]

NARRATIVE: CASE EVENT DATE: 20180404
